FAERS Safety Report 5168840-1 (Version None)
Quarter: 2006Q4

REPORT INFORMATION
  Report Type: 
  Country: None (occurrence: None)
  Receive Date: 20061211
  Receipt Date: 20061127
  Transmission Date: 20070319
  Serious: Yes (Hospitalization)
  Sender: FDA-Public Use
  Company Number: FR-BRISTOL-MYERS SQUIBB COMPANY-13598479

PATIENT
  Age: 57 Year
  Sex: Male

DRUGS (2)
  1. ERBITUX [Suspect]
     Indication: LIP AND/OR ORAL CAVITY CANCER
     Route: 042
     Dates: start: 20061009, end: 20061030
  2. RADIOTHERAPY [Suspect]
     Indication: LIP AND/OR ORAL CAVITY CANCER
     Route: 042
     Dates: start: 20061009, end: 20061030

REACTIONS (3)
  - HEPATIC CIRRHOSIS [None]
  - MUCOSAL INFLAMMATION [None]
  - SKIN TOXICITY [None]
